FAERS Safety Report 19597255 (Version 1)
Quarter: 2021Q3

REPORT INFORMATION
  Report Type: Spontaneous
  Country: IL (occurrence: IL)
  Receive Date: 20210722
  Receipt Date: 20210722
  Transmission Date: 20211014
  Serious: Yes (Hospitalization, Other)
  Sender: FDA-Public Use
  Company Number: IL-BRISTOL-MYERS SQUIBB COMPANY-BMS-2021-069929

PATIENT
  Age: 70 Year
  Sex: Male

DRUGS (6)
  1. IPILIMUMAB [Suspect]
     Active Substance: IPILIMUMAB
     Indication: RENAL CELL CARCINOMA
     Dosage: UNK
     Route: 065
     Dates: start: 20200517
  2. NIVOLUMAB [Suspect]
     Active Substance: NIVOLUMAB
     Indication: RENAL CELL CARCINOMA
     Dosage: UNK
     Route: 065
     Dates: start: 20200517
  3. ELIQUIS [Suspect]
     Active Substance: APIXABAN
     Indication: DEEP VEIN THROMBOSIS
     Dosage: 5 UNITS NOT SPECIFIED
     Route: 065
  4. BERIPLEX [FACTOR II (PROTHROMBIN);FACTOR IX;FACTOR VII (PROCONVERTIN); [Concomitant]
     Indication: PRODUCT USED FOR UNKNOWN INDICATION
     Dosage: 500 X 4 UNITS NOT SPECIFIED
     Route: 065
  5. CONTROLOC [Concomitant]
     Active Substance: PANTOPRAZOLE SODIUM
     Indication: PRODUCT USED FOR UNKNOWN INDICATION
     Dosage: 80 X 3 UNITS NOT SPECIFIED
     Route: 065
  6. CLEXAN [Concomitant]
     Active Substance: ENOXAPARIN SODIUM
     Indication: PRODUCT USED FOR UNKNOWN INDICATION
     Dosage: 40 MILLIGRAM, QD
     Route: 065
     Dates: start: 20200522

REACTIONS (4)
  - Gastric varices haemorrhage [Unknown]
  - Helicobacter gastritis [Unknown]
  - Adenoma benign [Unknown]
  - Renal cyst [Unknown]

NARRATIVE: CASE EVENT DATE: 20200525
